FAERS Safety Report 17389071 (Version 2)
Quarter: 2022Q1

REPORT INFORMATION
  Report Type: Spontaneous
  Country: CA (occurrence: CA)
  Receive Date: 20200207
  Receipt Date: 20220204
  Transmission Date: 20220423
  Serious: Yes (Other)
  Sender: FDA-Public Use
  Company Number: CA-TEVA-2020-CA-1179068

PATIENT
  Age: 37 Year
  Sex: Female

DRUGS (12)
  1. AZATHIOPRINE [Suspect]
     Active Substance: AZATHIOPRINE
     Indication: Autoimmune retinopathy
     Dosage: 150 MILLIGRAM DAILY;
     Route: 048
  2. METHOTREXATE [Suspect]
     Active Substance: METHOTREXATE
     Indication: Autoimmune retinopathy
     Route: 058
  3. BORTEZOMIB [Suspect]
     Active Substance: BORTEZOMIB
     Indication: Autoimmune retinopathy
     Route: 058
  4. DEXAMETHASONE [Suspect]
     Active Substance: DEXAMETHASONE
     Indication: Autoimmune retinopathy
     Route: 048
  5. RITUXIMAB [Suspect]
     Active Substance: RITUXIMAB
     Indication: Autoimmune retinopathy
     Route: 042
  6. RITUXIMAB [Suspect]
     Active Substance: RITUXIMAB
     Route: 042
  7. RITUXIMAB [Suspect]
     Active Substance: RITUXIMAB
     Route: 042
  8. LEUCOVORIN [Concomitant]
     Active Substance: LEUCOVORIN
     Indication: Product used for unknown indication
     Dosage: 5 MILLIGRAM DAILY;
     Route: 065
  9. LEUCOVORIN [Concomitant]
     Active Substance: LEUCOVORIN
     Indication: Autoimmune retinopathy
  10. ONDANSETRON [Concomitant]
     Active Substance: ONDANSETRON
     Indication: Antiemetic supportive care
     Route: 065
  11. VALACYCLOVIR HYDROCHLORIDE [Concomitant]
     Active Substance: VALACYCLOVIR HYDROCHLORIDE
     Indication: Antiviral prophylaxis
     Route: 065
  12. DEXAMETHASONE [Concomitant]
     Active Substance: DEXAMETHASONE
     Indication: Autoimmune retinopathy
     Route: 048

REACTIONS (12)
  - Constipation [Unknown]
  - Epigastric discomfort [Unknown]
  - Fatigue [Unknown]
  - Hepatotoxicity [Unknown]
  - Injection site inflammation [Unknown]
  - Drug ineffective for unapproved indication [Unknown]
  - Autoimmune retinopathy [Unknown]
  - Disease progression [Unknown]
  - Off label use [Unknown]
  - Drug ineffective [Unknown]
  - Therapy non-responder [Unknown]
  - Therapy non-responder [Unknown]
